FAERS Safety Report 8185102-9 (Version None)
Quarter: 2012Q1

REPORT INFORMATION
  Report Type: 
  Country: None (occurrence: None)
  Receive Date: 20120305
  Receipt Date: 20120223
  Transmission Date: 20120608
  Serious: Yes (Death, Life-Threatening, Hospitalization, Other)
  Sender: FDA-Public Use
  Company Number: DE-JNJFOC-20120211766

PATIENT
  Sex: Male
  Weight: 97 kg

DRUGS (10)
  1. CLOPIDOGREL [Suspect]
     Indication: PRODUCT USED FOR UNKNOWN INDICATION
     Route: 065
     Dates: start: 20120215, end: 20120217
  2. ACETYLSALICYLIC ACID SRT [Suspect]
     Indication: PRODUCT USED FOR UNKNOWN INDICATION
     Dates: start: 20120215, end: 20120217
  3. TORSEMIDE [Concomitant]
  4. MAGNESIOCARD [Concomitant]
  5. FERROGLYCINE SULFATE COMPLEX [Concomitant]
  6. SPIRONOLACTONE [Concomitant]
  7. SIMVASTATIN [Concomitant]
  8. XARELTO [Suspect]
     Indication: PRODUCT USED FOR UNKNOWN INDICATION
     Route: 048
     Dates: start: 20120215, end: 20120217
  9. BISOPROLOL FUMARATE [Concomitant]
  10. PANTOPRAZOLE [Concomitant]

REACTIONS (4)
  - MOUTH HAEMORRHAGE [None]
  - DRUG INTERACTION [None]
  - CEREBRAL HAEMORRHAGE [None]
  - CEREBROVASCULAR ACCIDENT [None]
